FAERS Safety Report 13083594 (Version 1)
Quarter: 2017Q1

REPORT INFORMATION
  Report Type: Spontaneous
  Country: FR (occurrence: FR)
  Receive Date: 20170104
  Receipt Date: 20170104
  Transmission Date: 20170428
  Serious: Yes (Life-Threatening)
  Sender: FDA-Public Use
  Company Number: FR-ROCHE-1874602

PATIENT
  Age: 57 Year
  Sex: Female

DRUGS (11)
  1. AVASTIN [Suspect]
     Active Substance: BEVACIZUMAB
     Indication: BRONCHIAL CARCINOMA
     Route: 041
     Dates: start: 201609, end: 201611
  2. ESOMEPRAZOLE [Concomitant]
     Active Substance: ESOMEPRAZOLE
  3. ZOLPIDEM [Concomitant]
     Active Substance: ZOLPIDEM\ZOLPIDEM TARTRATE
  4. IRBESARTAN. [Concomitant]
     Active Substance: IRBESARTAN
  5. PREDNISOLONE. [Concomitant]
     Active Substance: PREDNISOLONE
  6. STRESAM [Concomitant]
     Active Substance: ETIFOXINE
  7. DOLIPRANE [Concomitant]
     Active Substance: ACETAMINOPHEN
  8. LEVETIRACETAM. [Concomitant]
     Active Substance: LEVETIRACETAM
  9. PACLITAXEL HOSPIRA [Suspect]
     Active Substance: PACLITAXEL
     Indication: BRONCHIAL CARCINOMA
     Route: 042
     Dates: start: 201609, end: 201611
  10. TRAMADOL HYDROCHLORIDE. [Concomitant]
     Active Substance: TRAMADOL HYDROCHLORIDE
  11. TANGANIL [Concomitant]
     Active Substance: ACETYLLEUCINE
     Route: 065

REACTIONS (1)
  - Oesophagobronchial fistula [Recovered/Resolved with Sequelae]

NARRATIVE: CASE EVENT DATE: 20161115
